FAERS Safety Report 4302375-0 (Version None)
Quarter: 2004Q1

REPORT INFORMATION
  Report Type: 
  Country: None (occurrence: None)
  Receive Date: 20040220
  Receipt Date: 20040203
  Transmission Date: 20041129
  Serious: Yes (Hospitalization)
  Sender: FDA-Public Use
  Company Number: F04200400011

PATIENT
  Age: 72 Year
  Sex: Male

DRUGS (2)
  1. ARIXTRA [Suspect]
     Indication: KNEE ARTHROPLASTY
     Dosage: 2.5 MG OD
     Route: 058
     Dates: start: 20021101, end: 20021105
  2. ARIXTRA [Suspect]
     Indication: THROMBOSIS PROPHYLAXIS
     Dosage: 2.5 MG OD
     Route: 058
     Dates: start: 20021101, end: 20021105

REACTIONS (2)
  - SOFT TISSUE HAEMORRHAGE [None]
  - WOUND INFECTION [None]
